FAERS Safety Report 6168003-7 (Version None)
Quarter: 2009Q2

REPORT INFORMATION
  Report Type: 
  Country: None (occurrence: None)
  Receive Date: 20090427
  Receipt Date: 20090410
  Transmission Date: 20091009
  Serious: Yes (Hospitalization, Other)
  Sender: FDA-Public Use
  Company Number: CN-ROCHE-627076

PATIENT
  Sex: Male

DRUGS (11)
  1. MYCOPHENOLATE MOFETIL [Suspect]
     Dosage: 1.5-2.0 G DAILY
     Route: 065
  2. TACROLIMUS [Suspect]
     Dosage: INITIAL DOSE: 0.1-0.15 MG/KG DAILY
     Route: 048
  3. TACROLIMUS [Suspect]
     Dosage: DOSE ADJUSTED PER BLOOD DRUG LEVEL,TARGET BLOOD DRUG LEVEL 10-20 NG/ML (DAY 0-14)
     Route: 048
  4. TACROLIMUS [Suspect]
     Dosage: TARGET BLOOD DRUG LEVEL LATER ON:5-15 NG/ML
     Route: 048
  5. METHYLPREDNISOLONE 4MG TAB [Suspect]
     Dosage: GIVEN ON DAY 0
     Route: 040
  6. METHYLPREDNISOLONE 4MG TAB [Suspect]
     Dosage: GIVEN ON DAY 1
     Route: 040
  7. METHYLPREDNISOLONE 4MG TAB [Suspect]
     Dosage: GIVEN ON DAY 2
     Route: 040
  8. PREDNISOLONE [Suspect]
     Dosage: ON DAY 3 TO 14: 20 MG DAILY
     Route: 048
  9. PREDNISOLONE [Suspect]
     Dosage: DAY 15 TO 28 : 15 MG DAILY
     Route: 048
  10. PREDNISOLONE [Suspect]
     Dosage: DAY 29 ONWARDS: 10 MG DAILY
     Route: 048
  11. PREDNISOLONE [Suspect]
     Dosage: TAPERED FROM 10MG DAILY TO 5MG DAILY SINCE DAY 92 OVER A PERIOD OF 14 DAYS. DISCONTINUED ON DAY 183
     Route: 048

REACTIONS (3)
  - DIABETES MELLITUS [None]
  - URINARY TRACT INFECTION [None]
  - URINARY TRACT OBSTRUCTION [None]
